FAERS Safety Report 5921009-2 (Version None)
Quarter: 2008Q4

REPORT INFORMATION
  Report Type: 
  Country: None (occurrence: None)
  Receive Date: 20081016
  Receipt Date: 20081013
  Transmission Date: 20090506
  Serious: Yes (Other)
  Sender: FDA-Public Use
  Company Number: GR-ASTRAZENECA-2008AC02684

PATIENT
  Age: 20 Year
  Sex: Male

DRUGS (6)
  1. PROPOFOL [Suspect]
     Indication: SEDATION
     Route: 042
  2. PROPOFOL [Suspect]
     Route: 042
  3. REMIFENTANYL [Concomitant]
     Indication: SEDATION
  4. MEROPENEM [Concomitant]
     Indication: ANTIBIOTIC THERAPY
  5. GENTAMYCIN SULFATE [Concomitant]
     Indication: ANTIBIOTIC THERAPY
  6. TEICOPLANIN [Concomitant]
     Indication: ANTIBIOTIC THERAPY

REACTIONS (3)
  - PROPOFOL INFUSION SYNDROME [None]
  - RENAL FAILURE ACUTE [None]
  - RHABDOMYOLYSIS [None]
